FAERS Safety Report 9878754 (Version 1)
Quarter: 2014Q1

REPORT INFORMATION
  Report Type: Spontaneous
  Country: US (occurrence: US)
  Receive Date: 20140206
  Receipt Date: 20140206
  Transmission Date: 20141002
  Serious: Yes (Other)
  Sender: FDA-Public Use
  Company Number: US-GLAXOSMITHKLINE-A1056823A

PATIENT
  Age: 59 Year
  Sex: Female

DRUGS (4)
  1. ADVAIR [Suspect]
     Indication: ASTHMA
     Route: 055
  2. VENTOLIN [Concomitant]
     Dates: start: 20090903
  3. ALBUTEROL [Concomitant]
  4. FLUTICASONE [Concomitant]
     Route: 045

REACTIONS (9)
  - Malignant melanoma [Recovered/Resolved]
  - Dry mouth [Not Recovered/Not Resolved]
  - Salivary gland enlargement [Not Recovered/Not Resolved]
  - Saliva altered [Not Recovered/Not Resolved]
  - Salivary gland disorder [Not Recovered/Not Resolved]
  - Fall [Unknown]
  - Ligament sprain [Unknown]
  - Dry mouth [Unknown]
  - Hypoacusis [Unknown]
